FAERS Safety Report 10154620 (Version 4)
Quarter: 2014Q4

REPORT INFORMATION
  Report Type: Spontaneous
  Country: US (occurrence: US)
  Receive Date: 20140506
  Receipt Date: 20141211
  Transmission Date: 20150528
  Serious: Yes (Other)
  Sender: FDA-Public Use
  Company Number: US-INCYTE CORPORATION-2014IN000570

PATIENT
  Age: 52 Year
  Sex: Female

DRUGS (5)
  1. JAKAFI [Suspect]
     Active Substance: RUXOLITINIB
     Indication: MYELOFIBROSIS
     Dosage: 15 MG, BID
     Route: 048
     Dates: start: 20140102
  2. ADVIL [Concomitant]
     Active Substance: IBUPROFEN
     Dosage: 200 MG EVERY 6 HOURS
     Route: 048
  3. HYDROXYUREA. [Suspect]
     Active Substance: HYDROXYUREA
     Indication: SPLENOMEGALY
     Dosage: 500 MG, QD
     Route: 048
     Dates: start: 201407, end: 20140730
  4. COUMADIN [Concomitant]
     Active Substance: WARFARIN SODIUM
     Dosage: 5 MG, QD
     Route: 048
  5. JAKAFI [Suspect]
     Active Substance: RUXOLITINIB
     Indication: MYELOPROLIFERATIVE DISORDER
     Dosage: 15 MG, QD
     Route: 048
     Dates: start: 20140730

REACTIONS (9)
  - Hunger [Unknown]
  - Hypophagia [Unknown]
  - Myalgia [Unknown]
  - Nausea [Unknown]
  - Platelet count decreased [Unknown]
  - Vision blurred [Unknown]
  - White blood cell count decreased [Unknown]
  - Ill-defined disorder [Unknown]
  - Red blood cell count decreased [Unknown]

NARRATIVE: CASE EVENT DATE: 20140219
